FAERS Safety Report 4902708-8 (Version None)
Quarter: 2006Q1

REPORT INFORMATION
  Report Type: 
  Country: None (occurrence: None)
  Receive Date: 20060207
  Receipt Date: 20060123
  Transmission Date: 20060701
  Serious: Yes (Other)
  Sender: FDA-Public Use
  Company Number: AU-ROCHE-433277

PATIENT
  Age: 65 Year
  Sex: Female

DRUGS (2)
  1. CEFTRIAXONE SODIUM [Suspect]
     Indication: DRUG USE FOR UNKNOWN INDICATION
     Route: 042
  2. AMPICILLIN SODIUM [Suspect]
     Indication: ENDOCARDIAL DISEASE
     Route: 042
     Dates: start: 20040910, end: 20040929

REACTIONS (2)
  - EOSINOPHILIA [None]
  - NEPHRITIS INTERSTITIAL [None]
